FAERS Safety Report 13177311 (Version 1)
Quarter: 2017Q1

REPORT INFORMATION
  Report Type: Report from Study
  Country: US (occurrence: US)
  Receive Date: 20170201
  Receipt Date: 20170201
  Transmission Date: 20170428
  Serious: Yes (Other)
  Sender: FDA-Public Use
  Company Number: US-EXELIXIS-CABO-15005678

PATIENT
  Sex: Male

DRUGS (1)
  1. COMETRIQ [Suspect]
     Active Substance: CABOZANTINIB S-MALATE
     Indication: RENAL CANCER
     Dosage: 60 MG, QD
     Route: 048
     Dates: start: 20150909, end: 20151202

REACTIONS (11)
  - Oral pain [Unknown]
  - Pain [Unknown]
  - Lung neoplasm [Unknown]
  - Pruritus [Unknown]
  - Dysphonia [Not Recovered/Not Resolved]
  - Hyperkeratosis [Not Recovered/Not Resolved]
  - Oropharyngeal pain [Unknown]
  - Rash [Unknown]
  - Dysphagia [Unknown]
  - Off label use [Unknown]
  - Headache [Unknown]
